FAERS Safety Report 22620218 (Version 1)
Quarter: 2023Q2

REPORT INFORMATION
  Report Type: Other
  Country: None (occurrence: US)
  Receive Date: 20230620
  Receipt Date: 20230620
  Transmission Date: 20230722
  Serious: Yes (Hospitalization, Other)
  Sender: FDA-Public Use
  Company Number: US-Appco Pharma LLC-2142899

PATIENT
  Age: 75 Year
  Sex: Female

DRUGS (2)
  1. METRONIDAZOLE [Suspect]
     Active Substance: METRONIDAZOLE
     Indication: Klebsiella infection
     Route: 065
  2. CEFTRIAXONE [Suspect]
     Active Substance: CEFTRIAXONE
     Route: 065

REACTIONS (3)
  - Drug ineffective [Unknown]
  - Blindness [Unknown]
  - Bacterial endophthalmitis [Unknown]
